FAERS Safety Report 9510940 (Version 2)
Quarter: 2014Q1

REPORT INFORMATION
  Report Type: Report from Study
  Country: US (occurrence: US)
  Receive Date: 20130910
  Receipt Date: 20140220
  Transmission Date: 20141002
  Serious: Yes (Other)
  Sender: FDA-Public Use
  Company Number: US-ROCHE-1271704

PATIENT
  Age: 58 Year
  Sex: Female

DRUGS (7)
  1. HERCEPTIN [Suspect]
     Indication: BREAST CANCER METASTATIC
     Dosage: 1L DOSE - 6 MG/KG EVERY 3
     Route: 065
  2. KADCYLA [Suspect]
     Indication: BREAST CANCER METASTATIC
     Route: 065
  3. XELODA [Suspect]
     Indication: BREAST CANCER METASTATIC
     Route: 065
  4. PARAPLATIN [Concomitant]
     Dosage: 1L
     Route: 065
  5. TAXOL [Concomitant]
     Dosage: 1L
     Route: 065
  6. TYKERB [Concomitant]
     Dosage: 2L
     Route: 065
  7. NEUPOGEN [Concomitant]
     Indication: PROPHYLAXIS
     Route: 065

REACTIONS (2)
  - Febrile neutropenia [Unknown]
  - Disease progression [Unknown]
